FAERS Safety Report 8360431-4 (Version None)
Quarter: 2012Q1

REPORT INFORMATION
  Report Type: 
  Country: None (occurrence: None)
  Receive Date: 20120315
  Receipt Date: 20110311
  Transmission Date: 20120608
  Serious: Yes (Other)
  Sender: FDA-Public Use
  Company Number: PHHY2011US16823

PATIENT
  Age: 60 Year
  Sex: Female

DRUGS (14)
  1. AMPYRA [Suspect]
     Indication: MUSCLE SPASMS
     Dosage: 10 MG, EVERY 12 HOURS
  2. OMEGA-3-ACID ETHYL ESTERS (LOVAZA) [Concomitant]
  3. VITAMIN D [Concomitant]
  4. VITAMIN E [Concomitant]
  5. GILENYA [Suspect]
     Indication: MULTIPLE SCLEROSIS RELAPSE
     Dosage: 0.5 MG, QD, ORAL
     Route: 048
     Dates: start: 20110127
  6. ALLEGRA [Concomitant]
  7. OMEGA-3-ACID ETHYL ESTERS (LOVAZA) [Concomitant]
  8. ASCORBIC ACID [Concomitant]
  9. GABAPENTIN [Concomitant]
  10. GABAPENTIN [Concomitant]
  11. CALCIUM WITH VITAMIN D (CALCIUM PHOSPHATE, CALCIUM SODIUM LACTATE, ERG [Concomitant]
  12. MULTIVITAMIN [Concomitant]
  13. CALCIUM WITH VITAMIN D (CALCIUM PHOSPHATE, CALCIUM SODIUM LACTATE, ERG [Concomitant]
  14. VITAMIN E [Concomitant]

REACTIONS (4)
  - BLOOD PRESSURE INCREASED [None]
  - INSOMNIA [None]
  - ABDOMINAL DISCOMFORT [None]
  - VISUAL ACUITY REDUCED [None]
